FAERS Safety Report 9227079 (Version 1)
Quarter: 2013Q1

REPORT INFORMATION
  Report Type: Spontaneous
  Country: US (occurrence: None)
  Receive Date: 20120927
  Receipt Date: 20120927
  Transmission Date: 20140127
  Serious: Yes (Other)
  Sender: FDA-Public Use
  Company Number: 2012-01209

PATIENT
  Age: 73 Year
  Sex: Male

DRUGS (9)
  1. VALPROIC ACID [Suspect]
     Indication: BIPOLAR DISORDER
     Dosage: 1000 MG (500 MG, 2 IN 1 D), UNKNOWN
  2. SERTRALINE (UNKNOWN) (SERTRALINE) [Concomitant]
  3. EPOETIN ALFA (UNKNOWN) [Concomitant]
  4. TERAZOSIN (UNKNOWN) [Concomitant]
  5. FINASTERIDE (UNKNOWN) [Concomitant]
  6. OMEPRAZOLE (UNKNOWN) [Concomitant]
  7. ASPIRIN (UNKNOWN) [Concomitant]
  8. CALCIUM WITH VITAMIN D (UNKNOWN) [Concomitant]
  9. LAMOTRIGINE (UNKNOWN) [Concomitant]

REACTIONS (1)
  - Pancytopenia [None]
